FAERS Safety Report 16154632 (Version 2)
Quarter: 2022Q4

REPORT INFORMATION
  Report Type: Report from Study
  Country: DE (occurrence: DE)
  Receive Date: 20190403
  Receipt Date: 20221220
  Transmission Date: 20230113
  Serious: Yes (Death, Hospitalization, Other)
  Sender: FDA-Public Use
  Company Number: DE-EMA-DD-20180328-DEEPAKEVHPDD-121819

PATIENT
  Age: 76 Year
  Sex: Female

DRUGS (14)
  1. CAPECITABINE [Suspect]
     Active Substance: CAPECITABINE
     Indication: Product used for unknown indication
     Dosage: 2500 MILLIGRAM DAILY;
     Route: 048
     Dates: start: 20150529, end: 20150921
  2. CAPECITABINE [Suspect]
     Active Substance: CAPECITABINE
     Route: 048
     Dates: start: 20151020, end: 20151213
  3. CAPECITABINE [Suspect]
     Active Substance: CAPECITABINE
     Dates: start: 20150505, end: 20150518
  4. BEVACIZUMAB [Suspect]
     Active Substance: BEVACIZUMAB
     Indication: Colorectal cancer metastatic
     Dates: start: 20141216
  5. BEVACIZUMAB [Suspect]
     Active Substance: BEVACIZUMAB
     Route: 042
     Dates: start: 20150929
  6. BEVACIZUMAB [Suspect]
     Active Substance: BEVACIZUMAB
     Route: 042
     Dates: start: 20151130
  7. BEVACIZUMAB [Suspect]
     Active Substance: BEVACIZUMAB
     Route: 042
     Dates: start: 20150617
  8. OXALIPLATIN [Concomitant]
     Active Substance: OXALIPLATIN
     Indication: Colorectal cancer
     Route: 042
     Dates: start: 20151204
  9. FLUOROURACIL [Concomitant]
     Active Substance: FLUOROURACIL
     Indication: Product used for unknown indication
     Route: 041
     Dates: start: 20150929, end: 20151001
  10. FLUOROURACIL [Concomitant]
     Active Substance: FLUOROURACIL
     Dosage: DATE OF LAST DOSE PRIOR TO SAE: 26/MAR/201
     Route: 041
     Dates: start: 20141216, end: 20150422
  11. FLUOROURACIL [Concomitant]
     Active Substance: FLUOROURACIL
     Dosage: DATE OF LAST DOSE PRIOR TO SAE: 26/MAR/2015
     Route: 040
     Dates: start: 20141216, end: 20150929
  12. FLUOROURACIL [Concomitant]
     Active Substance: FLUOROURACIL
     Dosage: DATE OF LAST DOSE PRIOR TO SAE: 26/MAR/2015
     Route: 041
     Dates: start: 20150929, end: 20151001
  13. IRINOTECAN [Concomitant]
     Active Substance: IRINOTECAN
     Indication: Colorectal cancer
     Dosage: DATE OF LAST DOSE PRIOR TO SAE: 24/MAR/2015
     Route: 042
     Dates: start: 20141216, end: 20150420
  14. LEUCOVORIN [Concomitant]
     Active Substance: LEUCOVORIN
     Indication: Colorectal cancer
     Dosage: DATE OF LAST DOSE PRIOR TO SAE: 24/MAR/2015
     Route: 042
     Dates: start: 20141216, end: 20150929

REACTIONS (6)
  - Subclavian vein thrombosis [Recovering/Resolving]
  - Sepsis [Fatal]
  - Hypertensive crisis [Recovered/Resolved]
  - Cholangitis [Unknown]
  - Diarrhoea [Recovering/Resolving]
  - Humerus fracture [Recovering/Resolving]

NARRATIVE: CASE EVENT DATE: 20150720
